FAERS Safety Report 5038291-9 (Version None)
Quarter: 2006Q2

REPORT INFORMATION
  Report Type: 
  Country: None (occurrence: None)
  Receive Date: 20060601
  Receipt Date: 20060124
  Transmission Date: 20061013
  Serious: No
  Sender: FDA-Public Use
  Company Number: 2006PV007545

PATIENT
  Age: 65 Year
  Sex: Male
  Weight: 174.6349 kg

DRUGS (7)
  1. BYETTA [Suspect]
     Indication: DIABETES MELLITUS NON-INSULIN-DEPENDENT
     Dosage: SEE IMAGE
     Route: 058
     Dates: start: 20051217, end: 20060116
  2. BYETTA [Suspect]
     Indication: DIABETES MELLITUS NON-INSULIN-DEPENDENT
     Dosage: SEE IMAGE
     Route: 058
     Dates: start: 20060117
  3. AMARYL [Suspect]
     Indication: DRUG USE FOR UNKNOWN INDICATION
     Dosage: QD;PO
     Route: 048
  4. ISOPHANE INSULIN [Concomitant]
  5. GLUCOPHAGE [Concomitant]
  6. AMARYL [Concomitant]
  7. ALTACE [Concomitant]

REACTIONS (5)
  - BLOOD GLUCOSE DECREASED [None]
  - FEELING JITTERY [None]
  - INJECTION SITE DISCOMFORT [None]
  - NERVOUSNESS [None]
  - TREMOR [None]
